FAERS Safety Report 5021087-1 (Version None)
Quarter: 2006Q2

REPORT INFORMATION
  Report Type: 
  Country: None (occurrence: None)
  Receive Date: 20060608
  Receipt Date: 20060530
  Transmission Date: 20061013
  Serious: Yes (Hospitalization)
  Sender: FDA-Public Use
  Company Number: US-AVENTIS-200615732GDDC

PATIENT
  Age: 80 Year
  Sex: Male

DRUGS (10)
  1. LANTUS [Suspect]
     Dosage: DOSE UNIT: UNITS
     Dates: start: 20040220
  2. AMARYL [Suspect]
     Route: 048
     Dates: start: 20011005
  3. ISOSORBIDE DINITRATE [Concomitant]
     Route: 048
     Dates: start: 20031006
  4. DIGOXIN [Concomitant]
     Route: 048
     Dates: start: 20010504
  5. LISINOPRIL [Concomitant]
     Route: 048
     Dates: start: 20010504
  6. FUROSEMIDE [Concomitant]
     Route: 048
     Dates: start: 20010504
  7. SIMVASTATIN [Concomitant]
     Route: 048
  8. FELODIPINE [Concomitant]
     Route: 048
     Dates: start: 20031006
  9. TERAZOSIN HCL [Concomitant]
     Route: 048
     Dates: start: 20010504
  10. GLUCAGON INJECTION [Concomitant]

REACTIONS (8)
  - ATRIAL FIBRILLATION [None]
  - BRADYCARDIA [None]
  - HAEMATOCRIT DECREASED [None]
  - HYPOGLYCAEMIC COMA [None]
  - LOSS OF CONSCIOUSNESS [None]
  - SICK SINUS SYNDROME [None]
  - SYNCOPE [None]
  - WHITE BLOOD CELL COUNT INCREASED [None]
